FAERS Safety Report 10303123 (Version 2)
Quarter: 2014Q3

REPORT INFORMATION
  Report Type: Spontaneous
  Country: US (occurrence: None)
  Receive Date: 20140710
  Receipt Date: 20140723
  Transmission Date: 20150326
  Serious: Yes (Death)
  Sender: FDA-Public Use
  Company Number: UNT-2014-003395

PATIENT
  Age: 48 Year
  Sex: Female
  Weight: 111.5 kg

DRUGS (4)
  1. TRACLEER [Concomitant]
     Active Substance: BOSENTAN\BOSENTAN MONOHYDRATE
  2. OPSUMIT (MACITENTAN) [Concomitant]
  3. REMODULIN [Suspect]
     Active Substance: TREPROSTINIL
     Indication: PULMONARY ARTERIAL HYPERTENSION
     Dosage: 0.062 UG/KG/MIN
     Route: 058
     Dates: start: 20130719, end: 20140627
  4. ADCIRCA [Concomitant]
     Active Substance: TADALAFIL

REACTIONS (3)
  - Right ventricular failure [None]
  - Renal failure acute [None]
  - Death [None]

NARRATIVE: CASE EVENT DATE: 20140627
